FAERS Safety Report 13766016 (Version 1)
Quarter: 2017Q3

REPORT INFORMATION
  Report Type: Spontaneous
  Country: US (occurrence: US)
  Receive Date: 20170718
  Receipt Date: 20170718
  Transmission Date: 20171127
  Serious: Yes (Hospitalization)
  Sender: FDA-Public Use
  Company Number: None

PATIENT
  Age: 69 Year
  Sex: Male
  Weight: 76.6 kg

DRUGS (11)
  1. GABAPENTIN. [Concomitant]
     Active Substance: GABAPENTIN
  2. LOSARTAN. [Concomitant]
     Active Substance: LOSARTAN
  3. CHLORHALIDONE [Concomitant]
  4. NAPROXEN. [Concomitant]
     Active Substance: NAPROXEN
  5. SENNS-DOCUSATE [Concomitant]
  6. ALENDRONATE [Concomitant]
     Active Substance: ALENDRONATE SODIUM
  7. METFORMIN [Concomitant]
     Active Substance: METFORMIN HYDROCHLORIDE
  8. ONDANSETRON [Concomitant]
     Active Substance: ONDANSETRON
  9. LUPRON [Concomitant]
     Active Substance: LEUPROLIDE ACETATE
  10. MORPHINE [Concomitant]
     Active Substance: MORPHINE
  11. ENZALUTAMIDE 40 MG (160 PO QD) [Suspect]
     Active Substance: ENZALUTAMIDE
     Indication: PROSTATE CANCER
     Route: 048
     Dates: start: 20170309

REACTIONS (2)
  - Pain [None]
  - Disease progression [None]

NARRATIVE: CASE EVENT DATE: 20170717
